FAERS Safety Report 5961063-5 (Version None)
Quarter: 2008Q4

REPORT INFORMATION
  Report Type: 
  Country: None (occurrence: None)
  Receive Date: 20081119
  Receipt Date: 20081106
  Transmission Date: 20090506
  Serious: Yes (Disabling)
  Sender: FDA-Public Use
  Company Number: ABIAS-08-0433

PATIENT
  Age: 55 Year
  Sex: Female

DRUGS (12)
  1. ABRAXANE [Suspect]
     Indication: BREAST CANCER METASTATIC
     Dosage: (150 MG, Q2WK), INTRAVENOUS
     Route: 042
     Dates: start: 20080124, end: 20080901
  2. CARBOPLATIN [Concomitant]
  3. GUAIFENESIN [Concomitant]
  4. OMEPRAZOLE [Concomitant]
  5. HYDROCODONE (HYDROCODONE) [Concomitant]
  6. ACETAMINOPHEN [Concomitant]
  7. PENICILLIN [Concomitant]
  8. MORPHINE [Concomitant]
  9. VITAMIN B6 [Concomitant]
  10. MIRTAZAPINE [Concomitant]
  11. ESCITALOPRAM [Concomitant]
  12. DECADRON [Concomitant]

REACTIONS (4)
  - HEART RATE INCREASED [None]
  - INTERVERTEBRAL DISC PROTRUSION [None]
  - PERIPHERAL MOTOR NEUROPATHY [None]
  - PERONEAL NERVE PALSY [None]
